FAERS Safety Report 4626663-3 (Version None)
Quarter: 2005Q1

REPORT INFORMATION
  Report Type: 
  Country: None (occurrence: None)
  Receive Date: 20050330
  Receipt Date: 20050315
  Transmission Date: 20050727
  Serious: Yes (Hospitalization)
  Sender: FDA-Public Use
  Company Number: 213170

PATIENT
  Age: 33 Year
  Sex: Female

DRUGS (3)
  1. RAPTIVA [Suspect]
     Indication: PSORIASIS
     Dosage: 0.6ML ML, 1/WEEK, SUBCUTANEOUS
     Route: 058
     Dates: start: 20040301
  2. DIET PILL (DIET AID NOS) [Concomitant]
  3. DIURETIC NOS (DIURETIC NOS) [Concomitant]

REACTIONS (2)
  - CONVULSION [None]
  - WEIGHT DECREASED [None]
